FAERS Safety Report 4294623-0 (Version None)
Quarter: 2004Q1

REPORT INFORMATION
  Report Type: 
  Country: None (occurrence: None)
  Receive Date: 20040211
  Receipt Date: 20040128
  Transmission Date: 20041129
  Serious: Yes (Hospitalization, Other)
  Sender: FDA-Public Use
  Company Number: US_0402100321

PATIENT
  Weight: 66 kg

DRUGS (10)
  1. HUMULIN N [Suspect]
     Indication: DIABETES MELLITUS
     Dosage: 15 U.IN THE EVENING
  2. HUMULIN R [Suspect]
     Indication: DIABETES MELLITUS
     Dates: end: 20030901
  3. HUMULIN L [Suspect]
     Indication: DIABETES MELLITUS
     Dates: start: 20030901
  4. HUMULIN U [Suspect]
     Indication: DIABETES MELLITUS
     Dates: start: 20030901
  5. HUMALOG [Suspect]
     Indication: DIABETES MELLITUS
  6. SIMVASTATIN [Concomitant]
  7. PROPAFENONE HYDROCHLORIDE [Concomitant]
  8. ISOSORBIDE MONONITRATE [Concomitant]
  9. CLOPIDOGREL BISULFATE [Concomitant]
  10. LANTUS [Concomitant]

REACTIONS (14)
  - BLOOD GLUCOSE FLUCTUATION [None]
  - BLOOD GLUCOSE INCREASED [None]
  - CORONARY ARTERY OCCLUSION [None]
  - DIABETES MELLITUS INADEQUATE CONTROL [None]
  - DRUG INEFFECTIVE [None]
  - HEART RATE IRREGULAR [None]
  - IMPAIRED GASTRIC EMPTYING [None]
  - MIGRAINE [None]
  - MYOCARDIAL INFARCTION [None]
  - NEUROPATHY PERIPHERAL [None]
  - RETINOPATHY [None]
  - TRANSIENT ISCHAEMIC ATTACK [None]
  - VERTIGO [None]
  - WEIGHT INCREASED [None]
